FAERS Safety Report 7093565-5 (Version None)
Quarter: 2010Q4

REPORT INFORMATION
  Report Type: 
  Country: None (occurrence: None)
  Receive Date: 20101110
  Receipt Date: 20101103
  Transmission Date: 20110411
  Serious: Yes (Hospitalization)
  Sender: FDA-Public Use
  Company Number: US-ROCHE-703364

PATIENT
  Sex: Male

DRUGS (7)
  1. PEGINTERFERON ALFA-2A [Suspect]
     Indication: HEPATITIS C
     Dosage: FORM: PRE-FILLED SYRINGE
     Route: 058
     Dates: start: 20100315, end: 20100531
  2. PEGINTERFERON ALFA-2A [Suspect]
     Route: 058
     Dates: start: 20100915
  3. COPEGUS [Suspect]
     Indication: HEPATITIS C
     Route: 048
     Dates: start: 20100315, end: 20100531
  4. COPEGUS [Suspect]
     Route: 048
     Dates: start: 20100915
  5. RIBAVARIN [Suspect]
     Indication: HEPATITIS C
     Dosage: DIVIDED DOSES.
     Route: 065
  6. MIRTAZAPINE [Concomitant]
  7. LORAZEPAM [Concomitant]

REACTIONS (6)
  - BACK INJURY [None]
  - EAR DISORDER [None]
  - JOINT SWELLING [None]
  - MUSCULOSKELETAL PAIN [None]
  - SYNCOPE [None]
  - VERTIGO [None]
